FAERS Safety Report 7979398-3 (Version None)
Quarter: 2011Q4

REPORT INFORMATION
  Report Type: 
  Country: None (occurrence: None)
  Receive Date: 20111213
  Receipt Date: 20111213
  Transmission Date: 20120403
  Serious: Yes (Hospitalization)
  Sender: FDA-Public Use
  Company Number: None

PATIENT
  Age: 63 Year
  Sex: Male
  Weight: 93.6 kg

DRUGS (4)
  1. DESFLURANE [Suspect]
     Indication: ANAESTHESIA
     Dosage: ONCE
     Dates: start: 20110906, end: 20110906
  2. DESFLURANE [Suspect]
     Indication: SURGERY
     Dosage: ONCE
     Dates: start: 20110906, end: 20110906
  3. CISATRACURIUM BESYLATE [Suspect]
     Indication: SURGERY
     Dosage: ONCE
     Dates: start: 20110906, end: 20110906
  4. CISATRACURIUM BESYLATE [Suspect]
     Indication: NEUROMUSCULAR BLOCKADE
     Dosage: ONCE
     Dates: start: 20110906, end: 20110906

REACTIONS (2)
  - PROCEDURAL NAUSEA [None]
  - PROCEDURAL VOMITING [None]
